FAERS Safety Report 17854942 (Version 3)
Quarter: 2024Q1

REPORT INFORMATION
  Report Type: Spontaneous
  Country: US (occurrence: US)
  Receive Date: 20200603
  Receipt Date: 20240221
  Transmission Date: 20240409
  Serious: No
  Sender: FDA-Public Use
  Company Number: US-PFIZER INC-2020217010

PATIENT
  Age: 71 Year
  Sex: Female

DRUGS (11)
  1. IBRANCE [Suspect]
     Active Substance: PALBOCICLIB
     Dosage: 100 MG
     Dates: start: 20191031
  2. IBRANCE [Suspect]
     Active Substance: PALBOCICLIB
     Dosage: 75MG (TAKE 1 CAPSULE OF 75MG), ONCE DAILY FOR DAYS 1-21 EVERY 28 DAYS
     Route: 048
     Dates: start: 20210924, end: 20240201
  3. AMLODIPINE BESYLATE [Concomitant]
     Active Substance: AMLODIPINE BESYLATE
     Dosage: UNK
  4. CALCIUM CARBONATE\CHOLECALCIFEROL [Concomitant]
     Active Substance: CALCIUM CARBONATE\CHOLECALCIFEROL
     Dosage: UNK
  5. IRON [Concomitant]
     Active Substance: IRON
  6. LOSARTAN [Concomitant]
     Active Substance: LOSARTAN
  7. METFORMIN [Concomitant]
     Active Substance: METFORMIN HYDROCHLORIDE
  8. PRAVACHOL [Concomitant]
     Active Substance: PRAVASTATIN SODIUM
  9. VITAMIN B12 [Concomitant]
     Active Substance: CYANOCOBALAMIN
  10. VITAMIN C [Concomitant]
     Active Substance: ASCORBIC ACID
  11. ZINC SULFATE [Concomitant]
     Active Substance: ZINC SULFATE

REACTIONS (2)
  - Decreased appetite [Unknown]
  - Neoplasm progression [Unknown]
